FAERS Safety Report 16612695 (Version 5)
Quarter: 2025Q4

REPORT INFORMATION
  Report Type: Report from Study
  Country: US (occurrence: US)
  Receive Date: 20190722
  Receipt Date: 20251110
  Transmission Date: 20260117
  Serious: Yes (Other)
  Sender: TAKEDA
  Company Number: US-TAKEDA-2019TUS044340

PATIENT
  Age: 83 Year
  Sex: Male

DRUGS (4)
  1. PONATINIB [Suspect]
     Active Substance: PONATINIB
     Indication: Chronic myeloid leukaemia
     Dosage: 30 MILLIGRAM, QD
     Dates: end: 20190729
  2. PONATINIB [Suspect]
     Active Substance: PONATINIB
     Dosage: 7.5 MILLIGRAM, QOD
  3. PONATINIB [Suspect]
     Active Substance: PONATINIB
     Dosage: 15 MILLIGRAM, QD
     Dates: start: 20230208
  4. PONATINIB [Suspect]
     Active Substance: PONATINIB
     Dosage: 7.5 MILLIGRAM, QD
     Dates: start: 20230228

REACTIONS (11)
  - Aphonia [Unknown]
  - Off label use [Unknown]
  - Malaise [Unknown]
  - Hypertension [Unknown]
  - Headache [Unknown]
  - Dizziness [Unknown]
  - Nausea [Unknown]
  - Abdominal pain upper [Unknown]
  - Fatigue [Unknown]
  - Pain [Unknown]
  - Wrong technique in product usage process [Unknown]

NARRATIVE: CASE EVENT DATE: 20251103
